FAERS Safety Report 4456311-7 (Version None)
Quarter: 2004Q3

REPORT INFORMATION
  Report Type: 
  Country: None (occurrence: None)
  Receive Date: 20040917
  Receipt Date: 20040830
  Transmission Date: 20050211
  Serious: Yes (Hospitalization)
  Sender: FDA-Public Use
  Company Number: USA040876772

PATIENT
  Age: 70 Year
  Sex: Male
  Weight: 86 kg

DRUGS (2)
  1. ALIMTA [Suspect]
     Indication: MESOTHELIOMA
     Dosage: 1000 MG
     Dates: start: 20040720
  2. CISPLATIN [Concomitant]

REACTIONS (7)
  - ASTHENIA [None]
  - CONFUSIONAL STATE [None]
  - DIZZINESS [None]
  - FULL BLOOD COUNT DECREASED [None]
  - IMPAIRED DRIVING ABILITY [None]
  - IMPAIRED WORK ABILITY [None]
  - PYREXIA [None]
